FAERS Safety Report 10520353 (Version 3)
Quarter: 2015Q1

REPORT INFORMATION
  Report Type: Spontaneous
  Country: US (occurrence: US)
  Receive Date: 20141015
  Receipt Date: 20150211
  Transmission Date: 20150720
  Serious: No
  Sender: FDA-Public Use
  Company Number: US-GLAXOSMITHKLINE-A1085427A

PATIENT

DRUGS (1)
  1. LAMICTAL [Suspect]
     Active Substance: LAMOTRIGINE
     Indication: PRODUCT USED FOR UNKNOWN INDICATION
     Dosage: 200 MG. UNKNOWN DOSING.
     Route: 065

REACTIONS (4)
  - Emotional disorder [Unknown]
  - Condition aggravated [Unknown]
  - Mental disorder [Unknown]
  - Weight increased [Unknown]
